FAERS Safety Report 9060617 (Version 5)
Quarter: 2014Q1

REPORT INFORMATION
  Report Type: Report from Study
  Country: GB (occurrence: GB)
  Receive Date: 20130211
  Receipt Date: 20140123
  Transmission Date: 20141002
  Serious: Yes (Other)
  Sender: FDA-Public Use
  Company Number: GB-VERTEX PHARMACEUTICALS INC.-2013-001857

PATIENT
  Age: 54 Year
  Sex: Male

DRUGS (4)
  1. VX-950 (TELAPREVIR) [Suspect]
     Indication: HEPATITIS C
     Dosage: 750 MG, TID
     Route: 048
     Dates: start: 20121122, end: 20130214
  2. CHLORPHENAMINE [Suspect]
     Indication: PRURITUS
     Dosage: UNK
     Route: 048
  3. PEGINTERFERON ALFA-2B [Suspect]
     Indication: HEPATITIS C
     Dosage: DOSAGE FORM: UNSPECIFIED
     Route: 050
     Dates: start: 20121122
  4. RIBAVIRIN [Suspect]
     Indication: HEPATITIS C
     Dosage: DOSAGE FORM: UNSPECIFIED
     Route: 048
     Dates: start: 20121122

REACTIONS (4)
  - Rash [Recovered/Resolved]
  - Rash vesicular [Recovered/Resolved]
  - Rash erythematous [Not Recovered/Not Resolved]
  - Rash pruritic [Unknown]
